FAERS Safety Report 8075410-4 (Version None)
Quarter: 2012Q1

REPORT INFORMATION
  Report Type: 
  Country: None (occurrence: None)
  Receive Date: 20120127
  Receipt Date: 20120123
  Transmission Date: 20120608
  Serious: No
  Sender: FDA-Public Use
  Company Number: US-PFIZER INC-2012006856

PATIENT
  Sex: Female
  Weight: 62.585 kg

DRUGS (5)
  1. URSODIOL [Concomitant]
     Dosage: UNK
  2. PENICILLIN G PROCAINE [Suspect]
     Indication: TONSILLITIS
     Dosage: UNK
  3. PENICILLIN G PROCAINE [Suspect]
     Dosage: UNK
     Dates: start: 19630101, end: 19630101
  4. SYNTHROID [Concomitant]
     Dosage: UNK
  5. CYTOMEL [Concomitant]
     Dosage: UNK

REACTIONS (1)
  - HYPERSENSITIVITY [None]
